FAERS Safety Report 16140172 (Version 1)
Quarter: 2019Q2

REPORT INFORMATION
  Report Type: Spontaneous
  Country: NL (occurrence: NL)
  Receive Date: 20190401
  Receipt Date: 20190401
  Transmission Date: 20190711
  Serious: Yes (Other)
  Sender: FDA-Public Use
  Company Number: PHHY2019NL067810

PATIENT
  Age: 38 Year
  Sex: Male

DRUGS (1)
  1. GILENYA [Suspect]
     Active Substance: FINGOLIMOD HYDROCHLORIDE
     Indication: RELAPSING-REMITTING MULTIPLE SCLEROSIS
     Route: 065

REACTIONS (8)
  - Lymphopenia [Unknown]
  - Balance disorder [Unknown]
  - Ataxia [Unknown]
  - Dysarthria [Unknown]
  - Vertigo [Unknown]
  - Vomiting [Unknown]
  - Central nervous system lesion [Unknown]
  - Central nervous system lymphoma [Unknown]

NARRATIVE: CASE EVENT DATE: 201701
